FAERS Safety Report 24300544 (Version 1)
Quarter: 2024Q3

REPORT INFORMATION
  Report Type: Spontaneous
  Country: GB (occurrence: GB)
  Receive Date: 20240910
  Receipt Date: 20240910
  Transmission Date: 20241016
  Serious: Yes (Disabling, Other)
  Sender: NOVO NORDISK
  Company Number: GB-MHRA-EMIS-4461-71887208-1195-48fc-bfb3-0fd337078811

PATIENT
  Age: 57 Year
  Sex: Male
  Weight: 125 kg

DRUGS (2)
  1. RYBELSUS [Suspect]
     Active Substance: SEMAGLUTIDE
     Indication: Type 2 diabetes mellitus
     Dosage: 3 MG, QD
  2. RYBELSUS [Suspect]
     Active Substance: SEMAGLUTIDE
     Dosage: 14 MG, QD
     Dates: start: 20240405, end: 20240814

REACTIONS (2)
  - Visual impairment [Recovering/Resolving]
  - Diabetic retinopathy [Unknown]

NARRATIVE: CASE EVENT DATE: 20240405
